FAERS Safety Report 22916902 (Version 3)
Quarter: 2023Q4

REPORT INFORMATION
  Report Type: Spontaneous
  Country: US (occurrence: US)
  Receive Date: 20230907
  Receipt Date: 20231019
  Transmission Date: 20240109
  Serious: No
  Sender: FDA-Public Use
  Company Number: US-PFIZER INC-2020475403

PATIENT
  Age: 76 Year
  Sex: Male

DRUGS (1)
  1. EUCRISA [Suspect]
     Active Substance: CRISABOROLE
     Dosage: APPLY 4-5GMS ON SKIN TWICE A DAY (100 G TUBE, 30-DAY SUPPLY)

REACTIONS (1)
  - Condition aggravated [Unknown]
